FAERS Safety Report 20081950 (Version 1)
Quarter: 2021Q4

REPORT INFORMATION
  Report Type: Spontaneous
  Country: DE (occurrence: DE)
  Receive Date: 20211117
  Receipt Date: 20211117
  Transmission Date: 20220303
  Serious: Yes (Hospitalization)
  Sender: FDA-Public Use
  Company Number: DE-ADRED-07157-01

PATIENT
  Age: 82 Year
  Sex: Male
  Weight: 100 kg

DRUGS (6)
  1. APIXABAN [Suspect]
     Active Substance: APIXABAN
     Indication: Product used for unknown indication
     Dosage: UNK, 5 MG, 1-0-1-0
     Route: 065
  2. RAMIPRIL [Concomitant]
     Active Substance: RAMIPRIL
     Dosage: 5 MG, 1-0-0-0
     Route: 065
  3. BISOPROLOL [Concomitant]
     Active Substance: BISOPROLOL
     Dosage: 2.5 MG, 1-0-0-0
     Route: 065
  4. TAMSULOSIN [Concomitant]
     Active Substance: TAMSULOSIN
     Dosage: UNK, 0.4 MG, 0-0-1-0
     Route: 065
  5. SIMVASTATIN [Concomitant]
     Active Substance: SIMVASTATIN
     Dosage: 10 MG, 0-0-1-0
     Route: 065
  6. AMLODIPIN                          /00972401/ [Concomitant]
     Dosage: 5 MG, 1-0-0-0
     Route: 065

REACTIONS (12)
  - Hypertension [Recovering/Resolving]
  - Haematuria [Recovering/Resolving]
  - General physical health deterioration [Recovering/Resolving]
  - Systemic infection [Recovering/Resolving]
  - Condition aggravated [Recovering/Resolving]
  - Tachypnoea [Recovering/Resolving]
  - Renal impairment [Recovering/Resolving]
  - Urinary incontinence [Recovering/Resolving]
  - Anaemia [Recovering/Resolving]
  - Urogenital haemorrhage [Recovering/Resolving]
  - Weight increased [Recovering/Resolving]
  - Abdominal pain [Recovering/Resolving]
